FAERS Safety Report 4764905-4 (Version None)
Quarter: 2005Q3

REPORT INFORMATION
  Report Type: 
  Country: None (occurrence: None)
  Receive Date: 20050909
  Receipt Date: 20050830
  Transmission Date: 20060218
  Serious: Yes (Hospitalization)
  Sender: FDA-Public Use
  Company Number: FR-JNJFOC-20050900899

PATIENT
  Age: 64 Year
  Sex: Female

DRUGS (1)
  1. IXPRIM [Suspect]
     Route: 048

REACTIONS (9)
  - AGITATION [None]
  - ANOREXIA [None]
  - ANXIETY [None]
  - DRUG WITHDRAWAL SYNDROME [None]
  - EXTRASYSTOLES [None]
  - GASTROINTESTINAL DISORDER [None]
  - INSOMNIA [None]
  - TREATMENT NONCOMPLIANCE [None]
  - TREMOR [None]
